FAERS Safety Report 9513643 (Version 2)
Quarter: 2013Q4

REPORT INFORMATION
  Report Type: Spontaneous
  Country: HU (occurrence: HU)
  Receive Date: 20130910
  Receipt Date: 20131015
  Transmission Date: 20140711
  Serious: Yes (Other)
  Sender: FDA-Public Use
  Company Number: HU-GLAXOSMITHKLINE-B0921387A

PATIENT
  Age: 59 Year
  Sex: Male

DRUGS (4)
  1. REVOLADE [Suspect]
     Indication: PRODUCT USED FOR UNKNOWN INDICATION
     Dosage: 50MG PER DAY
     Route: 065
     Dates: start: 201303
  2. COVEREX [Concomitant]
     Indication: HYPERTENSION
  3. MILURIT [Concomitant]
     Indication: HYPERTENSION
  4. FUROSEMIDE [Concomitant]
     Indication: HYPERTENSION

REACTIONS (1)
  - Cerebrovascular accident [Recovering/Resolving]
